FAERS Safety Report 18672558 (Version 1)
Quarter: 2020Q4

REPORT INFORMATION
  Report Type: Spontaneous
  Country: CN (occurrence: CN)
  Receive Date: 20201228
  Receipt Date: 20201228
  Transmission Date: 20210114
  Serious: Yes (Hospitalization)
  Sender: FDA-Public Use
  Company Number: CN-GLAXOSMITHKLINE-CN2020APC252703

PATIENT
  Age: 45 Year
  Sex: Male

DRUGS (3)
  1. LAMICTAL [Suspect]
     Active Substance: LAMOTRIGINE
     Indication: EPILEPSY
     Dosage: 25 MG, QD
     Route: 048
     Dates: start: 20201129, end: 20201212
  2. IDEBENONE [Suspect]
     Active Substance: IDEBENONE
     Indication: EPILEPSY
     Dosage: 1 DF, QID
     Route: 048
     Dates: start: 20201129, end: 20201212
  3. VALPROATE MAGNESIUM [Suspect]
     Active Substance: VALPROATE MAGNESIUM
     Indication: EPILEPSY
     Dosage: UNK, 10 YEARS AGO
     Dates: end: 20201212

REACTIONS (4)
  - Erythema [Unknown]
  - Wrong technique in product usage process [Recovered/Resolved]
  - Hypersensitivity [Unknown]
  - Blister [Unknown]

NARRATIVE: CASE EVENT DATE: 20201129
